FAERS Safety Report 9594539 (Version 1)
Quarter: 2013Q3

REPORT INFORMATION
  Report Type: Spontaneous
  Country: US (occurrence: None)
  Receive Date: 20130927
  Receipt Date: 20130927
  Transmission Date: 20140515
  Serious: No
  Sender: FDA-Public Use
  Company Number: CABO-13002949

PATIENT
  Age: 79 Year
  Sex: Male
  Weight: 72.6 kg

DRUGS (27)
  1. COMETRIQ (CABOZANTINIB) CAPSULE [Suspect]
     Indication: PROSTATE CANCER
     Route: 048
     Dates: start: 20130424
  2. ASPIRIN [Concomitant]
  3. AVODART [Concomitant]
  4. BACTROBAN [Concomitant]
  5. BENADRYL [Concomitant]
  6. CALCIUM [Concomitant]
  7. CELEBREX [Concomitant]
  8. CIALIS [Concomitant]
  9. CLOBETASOL [Concomitant]
  10. COENZYME Q10 [Concomitant]
  11. DESONIDE [Concomitant]
  12. ALLEGRA [Concomitant]
  13. FLECAINIDE [Concomitant]
  14. HYDROCORTISONE [Concomitant]
  15. IPRATROPIUM [Concomitant]
  16. LANOXIN [Concomitant]
  17. LORAZEPAM [Concomitant]
  18. LUNESTA [Concomitant]
  19. NASONEX [Concomitant]
  20. METOPROLOL [Concomitant]
  21. MAGNESIUM [Concomitant]
  22. OMEPRAZOLE [Concomitant]
  23. OXYCODONE [Concomitant]
  24. PREDNISONE [Concomitant]
  25. WARFARIN [Concomitant]
  26. SIMVASTATIN [Concomitant]
  27. MULTIVITAMIN [Concomitant]

REACTIONS (1)
  - Drug ineffective [None]
